FAERS Safety Report 17055908 (Version 4)
Quarter: 2020Q1

REPORT INFORMATION
  Report Type: Report from Study
  Country: HK (occurrence: HK)
  Receive Date: 20191120
  Receipt Date: 20200325
  Transmission Date: 20200409
  Serious: Yes (Death, Hospitalization)
  Sender: FDA-Public Use
  Company Number: HK-ROCHE-2472176

PATIENT
  Age: 70 Year
  Sex: Male
  Weight: 48.5 kg

DRUGS (9)
  1. ENTECAVIR. [Concomitant]
     Active Substance: ENTECAVIR
  2. PREDNISOLONE. [Concomitant]
     Active Substance: PREDNISOLONE
  3. VITAMIN K1 [Concomitant]
     Active Substance: PHYTONADIONE
  4. ATEZOLIZUMAB. [Suspect]
     Active Substance: ATEZOLIZUMAB
     Indication: HEPATOCELLULAR CARCINOMA
     Route: 042
     Dates: start: 20190802, end: 20191025
  5. PROPYLTHIOURACIL. [Concomitant]
     Active Substance: PROPYLTHIOURACIL
  6. PRAZOSIN. [Concomitant]
     Active Substance: PRAZOSIN
  7. CABOZANTINIB [Suspect]
     Active Substance: CABOZANTINIB
     Indication: HEPATOCELLULAR CARCINOMA
     Route: 048
     Dates: start: 20190802, end: 20191025
  8. PANTOPRAZOLE [Concomitant]
     Active Substance: PANTOPRAZOLE
  9. METHIMAZOLE. [Concomitant]
     Active Substance: METHIMAZOLE

REACTIONS (2)
  - Disease progression [Recovering/Resolving]
  - Acute kidney injury [Fatal]

NARRATIVE: CASE EVENT DATE: 20191101
